FAERS Safety Report 12171910 (Version 1)
Quarter: 2016Q1

REPORT INFORMATION
  Report Type: Spontaneous
  Country: US (occurrence: US)
  Receive Date: 20160311
  Receipt Date: 20160311
  Transmission Date: 20160526
  Serious: No
  Sender: FDA-Public Use
  Company Number: US-HORIZON-PEN-0097-2016

PATIENT
  Age: 61 Year
  Sex: Male

DRUGS (1)
  1. PENNSAID [Suspect]
     Active Substance: DICLOFENAC SODIUM
     Indication: ARTHRALGIA
     Dosage: BID
     Dates: start: 20160224, end: 20160228

REACTIONS (7)
  - Off label use [Unknown]
  - Application site erythema [Unknown]
  - Rash [Recovered/Resolved]
  - Skin exfoliation [Unknown]
  - Dry skin [Recovering/Resolving]
  - Urticaria [Unknown]
  - Application site pruritus [Recovered/Resolved]

NARRATIVE: CASE EVENT DATE: 20160228
